FAERS Safety Report 21904812 (Version 1)
Quarter: 2023Q1

REPORT INFORMATION
  Report Type: Spontaneous
  Country: US (occurrence: US)
  Receive Date: 20230124
  Receipt Date: 20230124
  Transmission Date: 20230418
  Serious: No
  Sender: FDA-Public Use
  Company Number: US-MYLANLABS-2023M1001991

PATIENT
  Age: 29 Year
  Sex: Female
  Weight: 52.16 kg

DRUGS (2)
  1. ZOLOFT [Suspect]
     Active Substance: SERTRALINE HYDROCHLORIDE
     Indication: Depression
     Dosage: 50 MILLIGRAM
     Route: 065
  2. ZOLOFT [Suspect]
     Active Substance: SERTRALINE HYDROCHLORIDE
     Dosage: 25 MILLIGRAM
     Route: 065

REACTIONS (6)
  - Physical disability [Unknown]
  - Breath sounds abnormal [Unknown]
  - Tic [Unknown]
  - Dyskinesia [Unknown]
  - Memory impairment [Unknown]
  - Fatigue [Unknown]

NARRATIVE: CASE EVENT DATE: 20221230
